FAERS Safety Report 8289190-0 (Version None)
Quarter: 2012Q2

REPORT INFORMATION
  Report Type: 
  Country: None (occurrence: None)
  Receive Date: 20120417
  Receipt Date: 20120412
  Transmission Date: 20120825
  Serious: Yes (Hospitalization)
  Sender: FDA-Public Use
  Company Number: PHHO2012US005520

PATIENT
  Sex: Male
  Weight: 92.063 kg

DRUGS (3)
  1. TASIGNA [Suspect]
     Dosage: UNK
     Route: 048
     Dates: start: 20120410
  2. TASIGNA [Suspect]
     Indication: CHRONIC MYELOID LEUKAEMIA
     Dosage: 400 MG, BID
     Route: 048
     Dates: start: 20071220, end: 20120407
  3. TASIGNA [Suspect]
     Dosage: NO TREATMENT RECEIVED
     Dates: start: 20120408, end: 20120409

REACTIONS (1)
  - INTESTINAL OBSTRUCTION [None]
